FAERS Safety Report 4662339-4 (Version None)
Quarter: 2005Q2

REPORT INFORMATION
  Report Type: 
  Country: None (occurrence: None)
  Receive Date: 20050513
  Receipt Date: 20050513
  Transmission Date: 20051028
  Serious: Yes (Hospitalization)
  Sender: FDA-Public Use
  Company Number: None

PATIENT
  Age: 57 Year
  Sex: Male

DRUGS (16)
  1. TOPOTECAN [Suspect]
     Indication: CHEMOTHERAPY
     Dosage: 2.9MG   IV QD X 4 D
     Route: 042
     Dates: start: 20050222, end: 20050225
  2. TRAZODONE [Concomitant]
  3. GABAPENTIN [Concomitant]
  4. SCOPOLAMINE [Concomitant]
  5. PHENERGAN [Concomitant]
  6. OMEPRAZOLE [Concomitant]
  7. METOPROLOL [Concomitant]
  8. REGLAN [Concomitant]
  9. METFORMIN [Concomitant]
  10. LISINOPRIL [Concomitant]
  11. ISORDIL [Concomitant]
  12. HUMULIN 70/30 [Concomitant]
  13. GLIBURUIDE [Concomitant]
  14. CYCLOBENZAPRINE HCL [Concomitant]
  15. ALBUTEROL [Concomitant]
  16. TYLENOL (CAPLET) [Concomitant]

REACTIONS (2)
  - HYPOTENSION [None]
  - PANCYTOPENIA [None]
